FAERS Safety Report 21241945 (Version 4)
Quarter: 2022Q3

REPORT INFORMATION
  Report Type: Spontaneous
  Country: US (occurrence: US)
  Receive Date: 20220823
  Receipt Date: 20220831
  Transmission Date: 20221027
  Serious: No
  Sender: FDA-Public Use
  Company Number: US-PFIZER INC-202201074242

PATIENT
  Age: 63 Year
  Sex: Male
  Weight: 117.03 kg

DRUGS (1)
  1. NICOTROL [Suspect]
     Active Substance: NICOTINE
     Indication: Smoking cessation therapy
     Dosage: WHEN HE FELT URGE TO SMOKE, TOOK A PUFF AND IF HE NEEDED MORE SUCKED ON IT HARDER
     Dates: start: 2022

REACTIONS (2)
  - Drug ineffective [Not Recovered/Not Resolved]
  - Poor quality product administered [Not Recovered/Not Resolved]

NARRATIVE: CASE EVENT DATE: 20220101
